FAERS Safety Report 22737504 (Version 13)
Quarter: 2024Q4

REPORT INFORMATION
  Report Type: Spontaneous
  Country: US (occurrence: US)
  Receive Date: 20230721
  Receipt Date: 20241002
  Transmission Date: 20250114
  Serious: Yes (Other)
  Sender: BLUEPRINT MEDICINES
  Company Number: US-Blueprint Medicines Corporation-1279

PATIENT
  Age: 59 Year
  Sex: Female

DRUGS (6)
  1. AYVAKIT [Suspect]
     Active Substance: AVAPRITINIB
     Indication: Advanced systemic mastocytosis
     Route: 065
     Dates: start: 20230514
  2. AYVAKIT [Suspect]
     Active Substance: AVAPRITINIB
     Route: 065
     Dates: start: 20230518
  3. AYVAKIT [Suspect]
     Active Substance: AVAPRITINIB
     Route: 065
     Dates: start: 20230519
  4. AYVAKIT [Suspect]
     Active Substance: AVAPRITINIB
     Route: 065
     Dates: start: 20231219
  5. AYVAKIT [Suspect]
     Active Substance: AVAPRITINIB
     Route: 065
     Dates: start: 20230518
  6. AYVAKIT [Suspect]
     Active Substance: AVAPRITINIB
     Route: 048
     Dates: start: 20230518

REACTIONS (18)
  - Major depression [Unknown]
  - Arthropathy [Unknown]
  - Arthralgia [Not Recovered/Not Resolved]
  - Periorbital oedema [Unknown]
  - Lacrimation increased [Unknown]
  - Hepatosplenomegaly [Unknown]
  - Liver function test abnormal [Recovering/Resolving]
  - Eye swelling [Unknown]
  - Swelling face [Unknown]
  - Unevaluable event [Unknown]
  - Dysphonia [Unknown]
  - Nasopharyngitis [Unknown]
  - Hypoaesthesia [Unknown]
  - Paraesthesia [Unknown]
  - Toxicity to various agents [Unknown]
  - Breast calcifications [Unknown]
  - Osteosclerosis [Unknown]
  - Tryptase increased [Recovered/Resolved]

NARRATIVE: CASE EVENT DATE: 20230601
